FAERS Safety Report 6534795-8 (Version None)
Quarter: 2010Q1

REPORT INFORMATION
  Report Type: 
  Country: None (occurrence: None)
  Receive Date: 20100112
  Receipt Date: 20100107
  Transmission Date: 20100710
  Serious: Yes (Hospitalization)
  Sender: FDA-Public Use
  Company Number: TR-ELI_LILLY_AND_COMPANY-TR201001001124

PATIENT
  Age: 52 Year
  Sex: Female

DRUGS (8)
  1. HUMALOG [Suspect]
     Indication: DIABETES MELLITUS
     Dosage: 8 IU, 3/D
     Route: 058
  2. LANTUS [Concomitant]
     Indication: DIABETES MELLITUS
     Dosage: 20 IU, DAILY (1/D)
     Route: 058
  3. PLAVIX [Concomitant]
     Dosage: 75 MG, DAILY (1/D)
     Route: 048
  4. TYLOL /00020001/ [Concomitant]
     Indication: PAIN
     Dosage: 500 MG, AS NEEDED
     Route: 048
  5. LASIX [Concomitant]
     Dosage: 40 MG, OTHER
     Route: 048
  6. BELOC /00376903/ [Concomitant]
     Dosage: 50 MG, DAILY (1/D)
     Route: 048
  7. ATORVASTATIN [Concomitant]
     Dosage: 20 MG, DAILY (1/D)
     Route: 048
  8. CORASPIN [Concomitant]
     Dosage: 100 MG, DAILY (1/D)
     Route: 048

REACTIONS (1)
  - CARDIAC OPERATION [None]
